FAERS Safety Report 15365387 (Version 1)
Quarter: 2018Q3

REPORT INFORMATION
  Report Type: Spontaneous
  Country: US (occurrence: US)
  Receive Date: 20180831
  Receipt Date: 20180831
  Transmission Date: 20181010
  Serious: Yes (Disabling)
  Sender: FDA-Public Use
  Company Number: None

PATIENT
  Age: 25 Year
  Sex: Male
  Weight: 69.75 kg

DRUGS (8)
  1. OCEAN SALINE NASAL SPRAY [Suspect]
     Active Substance: SODIUM CHLORIDE
     Indication: SINUSITIS
     Dosage: ?          OTHER STRENGTH:SPRAY;QUANTITY:2 SPRAY BOTTLES;OTHER ROUTE:NASAL SPRAY?
     Dates: start: 20171115, end: 20180401
  2. ALLEGRA [Concomitant]
     Active Substance: FEXOFENADINE HYDROCHLORIDE
  3. OCEAN SALINE NASAL SPRAY [Suspect]
     Active Substance: SODIUM CHLORIDE
     Indication: PARANASAL SINUS HYPOSECRETION
     Dosage: ?          OTHER STRENGTH:SPRAY;QUANTITY:2 SPRAY BOTTLES;OTHER ROUTE:NASAL SPRAY?
     Dates: start: 20171115, end: 20180401
  4. OCEAN SALINE NASAL SPRAY [Suspect]
     Active Substance: SODIUM CHLORIDE
     Indication: MULTIPLE ALLERGIES
     Dosage: ?          OTHER STRENGTH:SPRAY;QUANTITY:2 SPRAY BOTTLES;OTHER ROUTE:NASAL SPRAY?
     Dates: start: 20171115, end: 20180401
  5. AZELASTINE HCI NASAL SOLUTION [Concomitant]
  6. NASACORT [Concomitant]
     Active Substance: TRIAMCINOLONE ACETONIDE
  7. NASAFLO [Concomitant]
  8. XYZAL [Concomitant]
     Active Substance: LEVOCETIRIZINE DIHYDROCHLORIDE

REACTIONS (10)
  - Alanine aminotransferase increased [None]
  - Ear disorder [None]
  - Oropharyngeal pain [None]
  - Tonsillar disorder [None]
  - Sinus disorder [None]
  - Ear infection [None]
  - Fatigue [None]
  - Lymphadenopathy [None]
  - Ear discomfort [None]
  - Swelling [None]

NARRATIVE: CASE EVENT DATE: 20180831
